FAERS Safety Report 4651534-6 (Version None)
Quarter: 2005Q2

REPORT INFORMATION
  Report Type: 
  Country: None (occurrence: None)
  Receive Date: 20050503
  Receipt Date: 20050104
  Transmission Date: 20051028
  Serious: Yes (Death)
  Sender: FDA-Public Use
  Company Number: US-MERCK-0501USA00359

PATIENT
  Age: 51 Year
  Sex: Male

DRUGS (11)
  1. VIOXX [Suspect]
     Route: 048
     Dates: start: 20001025, end: 20021216
  2. ORPHENADRINE [Concomitant]
     Route: 065
  3. FUROSEMIDE [Concomitant]
     Route: 065
  4. ISOSORBIDE [Concomitant]
     Route: 065
  5. LORAZEPAM [Concomitant]
     Route: 065
  6. NITROQUICK [Concomitant]
     Route: 065
  7. LANOXIN [Concomitant]
     Route: 065
  8. UNIPHYL [Concomitant]
     Route: 065
  9. SPIRONOLACTONE [Concomitant]
     Route: 065
  10. LIPITOR [Concomitant]
     Route: 065
  11. [THERAPY UNSPECIFIED] [Concomitant]
     Route: 065

REACTIONS (7)
  - ARTERIAL OCCLUSIVE DISEASE [None]
  - CARDIAC DISORDER [None]
  - CARDIOVASCULAR DISORDER [None]
  - CONDITION AGGRAVATED [None]
  - CORONARY ARTERY DISEASE [None]
  - HAEMORRHAGE [None]
  - MYOCARDIAL INFARCTION [None]
